FAERS Safety Report 15714482 (Version 1)
Quarter: 2018Q4

REPORT INFORMATION
  Report Type: Spontaneous
  Country: BY (occurrence: BY)
  Receive Date: 20181212
  Receipt Date: 20181212
  Transmission Date: 20190205
  Serious: Yes (Hospitalization, Other)
  Sender: FDA-Public Use
  Company Number: BY-JNJFOC-20181211824

PATIENT
  Sex: Female

DRUGS (1)
  1. XARELTO [Suspect]
     Active Substance: RIVAROXABAN
     Indication: ANTICOAGULANT THERAPY
     Route: 048

REACTIONS (5)
  - Vascular malformation [Unknown]
  - Product use issue [Unknown]
  - Creatinine renal clearance decreased [Unknown]
  - Product prescribing issue [Unknown]
  - Epistaxis [Unknown]
